FAERS Safety Report 17044634 (Version 1)
Quarter: 2019Q4

REPORT INFORMATION
  Report Type: Spontaneous
  Country: JP (occurrence: JP)
  Receive Date: 20191118
  Receipt Date: 20191118
  Transmission Date: 20200122
  Serious: Yes (Hospitalization)
  Sender: FDA-Public Use
  Company Number: JP-ELI_LILLY_AND_COMPANY-JP201911007202

PATIENT
  Age: 75 Year
  Sex: Female

DRUGS (1)
  1. ERBITUX [Suspect]
     Active Substance: CETUXIMAB
     Indication: COLON CANCER
     Dosage: UNK UNK, WEEKLY (1/W)
     Route: 042

REACTIONS (5)
  - Skin ulcer [Unknown]
  - Cytomegalovirus test positive [Recovered/Resolved]
  - Cellulitis [Recovering/Resolving]
  - Paronychia [Unknown]
  - Malaise [Unknown]
